FAERS Safety Report 14914280 (Version 2)
Quarter: 2018Q2

REPORT INFORMATION
  Report Type: Spontaneous
  Country: US (occurrence: US)
  Receive Date: 20180518
  Receipt Date: 20180525
  Transmission Date: 20180711
  Serious: Yes (Hospitalization, Other)
  Sender: FDA-Public Use
  Company Number: US-JNJFOC-20180514917

PATIENT
  Sex: Male
  Weight: 64.41 kg

DRUGS (33)
  1. RISPERDAL [Suspect]
     Active Substance: RISPERIDONE
     Indication: PRODUCT USED FOR UNKNOWN INDICATION
     Dosage: SWITCHED OFF IN EITHER 2010 OR 2011
     Route: 065
     Dates: start: 2007
  2. PALIPERIDONE. [Suspect]
     Active Substance: PALIPERIDONE
     Indication: PRODUCT USED FOR UNKNOWN INDICATION
     Route: 048
  3. BELSOMRA [Concomitant]
     Active Substance: SUVOREXANT
     Route: 065
  4. NIASPAN [Concomitant]
     Active Substance: NIACIN
     Route: 065
  5. COMBIVENT [Concomitant]
     Active Substance: ALBUTEROL SULFATE\IPRATROPIUM BROMIDE
     Route: 065
  6. FLONASE [Concomitant]
     Active Substance: FLUTICASONE PROPIONATE
     Route: 065
  7. TOPAMAX [Suspect]
     Active Substance: TOPIRAMATE
     Indication: AFFECTIVE DISORDER
     Dosage: HIGH DOSE OF IMMEDIATE RELEASE
     Route: 065
     Dates: start: 2007
  8. TOPAMAX [Suspect]
     Active Substance: TOPIRAMATE
     Indication: AFFECTIVE DISORDER
     Route: 065
     Dates: end: 201804
  9. HALOPERIDOL. [Suspect]
     Active Substance: HALOPERIDOL
     Indication: PSYCHOTIC DISORDER
     Dosage: 5 MG/ML
     Route: 065
     Dates: start: 2008
  10. FLUOXETINE [Concomitant]
     Active Substance: FLUOXETINE HYDROCHLORIDE
     Route: 065
  11. ACCUTANE [Concomitant]
     Active Substance: ISOTRETINOIN
     Route: 065
  12. RISPERIDONE. [Suspect]
     Active Substance: RISPERIDONE
     Indication: PRODUCT USED FOR UNKNOWN INDICATION
     Dosage: SWITCHED OFF IN EITHER 2010 OR 2011
     Route: 065
  13. TOPAMAX [Suspect]
     Active Substance: TOPIRAMATE
     Indication: MIGRAINE
     Dosage: LOW DOSE OF IMMEDIATE RELEASE
     Route: 065
  14. PAZEO [Concomitant]
     Active Substance: OLOPATADINE HYDROCHLORIDE
     Route: 065
  15. RELPAX [Concomitant]
     Active Substance: ELETRIPTAN HYDROBROMIDE
     Route: 065
  16. AMERGE [Concomitant]
     Active Substance: NARATRIPTAN HYDROCHLORIDE
     Indication: MIGRAINE
     Route: 065
  17. LEVOCETIRIZINE [Concomitant]
     Active Substance: LEVOCETIRIZINE
     Route: 065
  18. TOPAMAX [Suspect]
     Active Substance: TOPIRAMATE
     Indication: WEIGHT ABNORMAL
     Route: 065
     Dates: end: 201804
  19. CONCERTA [Suspect]
     Active Substance: METHYLPHENIDATE HYDROCHLORIDE
     Indication: PRODUCT USED FOR UNKNOWN INDICATION
     Dosage: EITHER 54 MG OR 57 MG BUT WAS 50 SOMETHING
     Route: 065
     Dates: start: 2010, end: 2010
  20. TIVICAY [Concomitant]
     Active Substance: DOLUTEGRAVIR SODIUM
     Route: 065
  21. KEFLEX [Concomitant]
     Active Substance: CEPHALEXIN
     Indication: ACNE
     Route: 065
  22. TOPAMAX [Suspect]
     Active Substance: TOPIRAMATE
     Indication: WEIGHT ABNORMAL
     Dosage: LOW DOSE OF IMMEDIATE RELEASE
     Route: 065
  23. INVEGA [Suspect]
     Active Substance: PALIPERIDONE
     Indication: PRODUCT USED FOR UNKNOWN INDICATION
     Dosage: STARTED IN LATE 2010 OR 2011
     Route: 048
     Dates: end: 201803
  24. TAZORAC [Concomitant]
     Active Substance: TAZAROTENE
     Route: 065
  25. KLONOPIN [Concomitant]
     Active Substance: CLONAZEPAM
     Route: 065
  26. EXTINA [Concomitant]
     Active Substance: KETOCONAZOLE
     Route: 065
  27. TOPAMAX [Suspect]
     Active Substance: TOPIRAMATE
     Indication: MIGRAINE
     Dosage: HIGH DOSE OF IMMEDIATE RELEASE
     Route: 065
     Dates: start: 2007
  28. TOPAMAX [Suspect]
     Active Substance: TOPIRAMATE
     Indication: WEIGHT ABNORMAL
     Dosage: HIGH DOSE OF IMMEDIATE RELEASE
     Route: 065
     Dates: start: 2007
  29. TOPAMAX [Suspect]
     Active Substance: TOPIRAMATE
     Indication: AFFECTIVE DISORDER
     Dosage: LOW DOSE OF IMMEDIATE RELEASE
     Route: 065
  30. TOPAMAX [Suspect]
     Active Substance: TOPIRAMATE
     Indication: MIGRAINE
     Route: 065
     Dates: end: 201804
  31. INVEGA [Suspect]
     Active Substance: PALIPERIDONE
     Indication: PRODUCT USED FOR UNKNOWN INDICATION
     Route: 048
     Dates: start: 2018
  32. TESTOSTERONE. [Concomitant]
     Active Substance: TESTOSTERONE
     Route: 065
  33. CAMBIA [Concomitant]
     Active Substance: DICLOFENAC POTASSIUM
     Route: 065

REACTIONS (13)
  - Drug dose omission [Unknown]
  - Treatment noncompliance [Unknown]
  - Migraine [Recovered/Resolved]
  - Inappropriate schedule of drug administration [Unknown]
  - Hallucination, auditory [Recovered/Resolved]
  - Weight increased [Unknown]
  - Crying [Recovered/Resolved]
  - Feeling of despair [Recovered/Resolved]
  - Off label use [Unknown]
  - Mood altered [Unknown]
  - Suicidal ideation [Recovered/Resolved]
  - Mania [Recovered/Resolved]
  - Adverse event [Unknown]

NARRATIVE: CASE EVENT DATE: 2007
